FAERS Safety Report 14382972 (Version 2)
Quarter: 2018Q1

REPORT INFORMATION
  Report Type: Spontaneous
  Country: NO (occurrence: NO)
  Receive Date: 20180114
  Receipt Date: 20180323
  Transmission Date: 20180509
  Serious: Yes (Hospitalization)
  Sender: FDA-Public Use
  Company Number: NO-TEVA-2018-NO-843164

PATIENT
  Age: 62 Year
  Sex: Female

DRUGS (7)
  1. PROGYNOVA [Concomitant]
     Active Substance: ESTRADIOL VALERATE
     Route: 048
  2. PREDNISOLON [Concomitant]
     Active Substance: PREDNISOLONE
     Dosage: PREDNISOLON DOSE WAS INCREASED FROM 2.5X1 TO 5MG X1 AFTER WITHDRAWAL OF METHOTREXATE AND INFLIXIMAB.
     Route: 048
  3. INFLIXIMAB [Suspect]
     Active Substance: INFLIXIMAB
     Indication: SPONDYLITIS
     Dosage: THE LAST INFLIXIMAB INFUSION WAS ADMINISTRATED APPROX 8 WEEKS BEFORE THE CURRENT HOSPITALIZATION
     Route: 051
     Dates: end: 20171030
  4. METHOTREXATE. [Suspect]
     Active Substance: METHOTREXATE
     Indication: SPONDYLITIS
     Route: 058
     Dates: end: 20171030
  5. FOLIC ACID. [Concomitant]
     Active Substance: FOLIC ACID
     Dosage: WITHDRAWN BECAUSE METHOTREXATE WAS WITHDRAWN.
     Route: 048
     Dates: end: 20171030
  6. DIOVAN [Concomitant]
     Active Substance: VALSARTAN
     Route: 048
  7. IBUX [Concomitant]
     Active Substance: IBUPROFEN
     Route: 048

REACTIONS (1)
  - Varicella zoster virus infection [Recovered/Resolved]

NARRATIVE: CASE EVENT DATE: 20171030
